FAERS Safety Report 13042375 (Version 3)
Quarter: 2017Q1

REPORT INFORMATION
  Report Type: Spontaneous
  Country: GB (occurrence: GB)
  Receive Date: 20161219
  Receipt Date: 20170106
  Transmission Date: 20170428
  Serious: Yes (Other)
  Sender: FDA-Public Use
  Company Number: GB-FERRINGPH-2016FE06603

PATIENT

DRUGS (5)
  1. ASPIRIN                            /00002701/ [Suspect]
     Active Substance: ASPIRIN
     Indication: PRODUCT USED FOR UNKNOWN INDICATION
     Route: 048
  2. FRAGMIN [Suspect]
     Active Substance: DALTEPARIN SODIUM
     Indication: PREGNANCY
     Dosage: UNK
     Route: 065
  3. PROGESTERONE. [Suspect]
     Active Substance: PROGESTERONE
     Dosage: UNK
  4. HUMIRA [Suspect]
     Active Substance: ADALIMUMAB
     Indication: PREGNANCY
     Dosage: UNK
     Route: 065
  5. PROGESTERONE. [Suspect]
     Active Substance: PROGESTERONE
     Indication: PREGNANCY
     Dosage: UNKNOWN
     Route: 065

REACTIONS (5)
  - Abortion spontaneous [Unknown]
  - Maternal exposure before pregnancy [Unknown]
  - Labelled drug-drug interaction medication error [Unknown]
  - Drug administration error [Unknown]
  - Vaginal haemorrhage [Unknown]
